FAERS Safety Report 5387714-4 (Version None)
Quarter: 2007Q3

REPORT INFORMATION
  Report Type: 
  Country: None (occurrence: None)
  Receive Date: 20070716
  Receipt Date: 20070711
  Transmission Date: 20080115
  Serious: Yes (Disabling, Other)
  Sender: FDA-Public Use
  Company Number: A0649727A

PATIENT
  Age: 48 Year
  Sex: Male
  Weight: 111.8 kg

DRUGS (3)
  1. AVODART [Suspect]
     Indication: BENIGN PROSTATIC HYPERPLASIA
     Dosage: .5MG PER DAY
     Route: 048
     Dates: start: 20061212, end: 20070201
  2. NASONEX [Concomitant]
  3. THYROID TAB [Concomitant]

REACTIONS (3)
  - ERECTILE DYSFUNCTION [None]
  - FATIGUE [None]
  - MUSCULAR WEAKNESS [None]
